FAERS Safety Report 6007112-X (Version None)
Quarter: 2008Q4

REPORT INFORMATION
  Report Type: 
  Country: None (occurrence: None)
  Receive Date: 20081217
  Receipt Date: 20080115
  Transmission Date: 20090506
  Serious: No
  Sender: FDA-Public Use
  Company Number: US-ASTRAZENECA-2008UW01120

PATIENT
  Age: 83 Year
  Sex: Female
  Weight: 87.1 kg

DRUGS (4)
  1. CRESTOR [Suspect]
     Route: 048
     Dates: start: 20080101
  2. LEVOXYL [Concomitant]
  3. ALLEGRA [Concomitant]
  4. VITAMINS [Concomitant]

REACTIONS (2)
  - FEELING HOT [None]
  - FLUSHING [None]
